FAERS Safety Report 7015199-0 (Version None)
Quarter: 2010Q3

REPORT INFORMATION
  Report Type: 
  Country: None (occurrence: None)
  Receive Date: 20100922
  Receipt Date: 20100915
  Transmission Date: 20110219
  Serious: Yes (Other)
  Sender: FDA-Public Use
  Company Number: 1000016306

PATIENT
  Age: 77 Year
  Sex: Female
  Weight: 52.6 kg

DRUGS (7)
  1. BYSTOLIC [Suspect]
     Indication: BUNDLE BRANCH BLOCK
     Dosage: 5 MG (5 MG, 1 IN 1 D), ORAL
     Route: 048
     Dates: start: 20100101
  2. LIPITOR [Suspect]
     Indication: CEREBROVASCULAR ACCIDENT
     Dosage: 80 MG (80 MG, 1 IN 1 D), ORAL; 40 MG (40 MG, 1 IN 1 D), ORAL; 20 MG (20 MG, 1 IN 1 D), ORAL
     Route: 048
  3. AMLODIPINE [Suspect]
     Indication: HYPERTENSION
     Dosage: 2.5 MG (2.5 MG, 1 IN 1 D), ORAL
     Route: 048
  4. OLMESARTAN (OLMESARTAN) [Suspect]
     Dates: end: 20100101
  5. LOSARTAN POTASSIUM AND HYDROCHLOROTHIAZIDE [Suspect]
     Indication: HYPERTENSION
     Dosage: 50/12.5 MG BID, ORAL
     Route: 048
  6. PROTONIX [Concomitant]
  7. VITAMINS (NOS) (VITAMINS (NOS) ) (VITAMINS (NOS) ) [Concomitant]

REACTIONS (6)
  - ARTHRALGIA [None]
  - BLOOD PRESSURE INCREASED [None]
  - BREAST ENLARGEMENT [None]
  - BURNING SENSATION [None]
  - HYPERAESTHESIA [None]
  - MUSCLE SPASMS [None]
